FAERS Safety Report 5332333-9 (Version None)
Quarter: 2007Q2

REPORT INFORMATION
  Report Type: 
  Country: None (occurrence: None)
  Receive Date: 20070523
  Receipt Date: 20070523
  Transmission Date: 20071010
  Serious: Yes (Hospitalization)
  Sender: FDA-Public Use
  Company Number: A0644687B

PATIENT
  Age: 48 Year
  Sex: Female
  Weight: 62.9 kg

DRUGS (4)
  1. LAPATINIB [Suspect]
     Dosage: 1250MG PER DAY
     Route: 048
     Dates: start: 20070315, end: 20070324
  2. CAPECITABINE [Suspect]
     Dosage: 1800MG TWICE PER DAY
     Route: 048
     Dates: start: 20070315, end: 20070322
  3. BELLADONNA [Concomitant]
     Route: 048
     Dates: start: 20070301
  4. LOMOTIL [Concomitant]
     Route: 048
     Dates: start: 20070301

REACTIONS (6)
  - ABDOMINAL PAIN [None]
  - DUODENAL ULCER [None]
  - NAUSEA [None]
  - PANCREATITIS [None]
  - URINARY TRACT INFECTION [None]
  - VOMITING [None]
